FAERS Safety Report 25547808 (Version 1)
Quarter: 2025Q3

REPORT INFORMATION
  Report Type: Spontaneous
  Country: JP (occurrence: JP)
  Receive Date: 20250714
  Receipt Date: 20250714
  Transmission Date: 20251021
  Serious: Yes (Death)
  Sender: ROCHE
  Company Number: JP-CHUGAI-2025022154

PATIENT
  Age: 6 Decade
  Sex: Male

DRUGS (1)
  1. ROZLYTREK [Suspect]
     Active Substance: ENTRECTINIB
     Indication: Neuroendocrine carcinoma
     Dosage: 600MG/DAY
     Route: 048

REACTIONS (5)
  - Blood creatinine increased [Unknown]
  - Neutrophil count decreased [Unknown]
  - Constipation [Unknown]
  - Disease progression [Fatal]
  - Drug ineffective [Unknown]
